FAERS Safety Report 4585436-0 (Version None)
Quarter: 2005Q1

REPORT INFORMATION
  Report Type: 
  Country: None (occurrence: None)
  Receive Date: 20050214
  Receipt Date: 20050201
  Transmission Date: 20050727
  Serious: Yes (Other)
  Sender: FDA-Public Use
  Company Number: 2005010562

PATIENT
  Sex: Female
  Weight: 117.028 kg

DRUGS (2)
  1. CELEBREX [Suspect]
     Indication: ARTHRALGIA
     Dosage: 200 MG (200 MG, 1 IN 1 D), ORAL
     Route: 048
  2. ATENOLOL [Concomitant]

REACTIONS (3)
  - ROAD TRAFFIC ACCIDENT [None]
  - ROTATOR CUFF SYNDROME [None]
  - TENDON INJURY [None]
